FAERS Safety Report 9529192 (Version 1)
Quarter: 2013Q3

REPORT INFORMATION
  Report Type: Not Available
  Country: US (occurrence: US)
  Receive Date: 20130916
  Receipt Date: 20130916
  Transmission Date: 20140515
  Serious: No
  Sender: FDA-Public Use
  Company Number: US-LUNDBECK-DKLU1089872

PATIENT
  Sex: Female

DRUGS (3)
  1. ONFI [Suspect]
     Indication: COMPLEX PARTIAL SEIZURES
     Dates: start: 20120905
  2. KEPPRA XR [Concomitant]
     Indication: PRODUCT USED FOR UNKNOWN INDICATION
  3. CARBATROL [Concomitant]
     Indication: PRODUCT USED FOR UNKNOWN INDICATION

REACTIONS (1)
  - Hypersomnia [Unknown]
